FAERS Safety Report 4331192-0 (Version None)
Quarter: 2004Q1

REPORT INFORMATION
  Report Type: 
  Country: None (occurrence: None)
  Receive Date: 20040331
  Receipt Date: 20040315
  Transmission Date: 20041129
  Serious: Yes (Death, Other)
  Sender: FDA-Public Use
  Company Number: GBS040314603

PATIENT
  Age: 45 Year
  Sex: Male

DRUGS (1)
  1. PROZAC [Suspect]
     Indication: DEPRESSION

REACTIONS (3)
  - AGITATION [None]
  - COMPLETED SUICIDE [None]
  - SELF-INJURIOUS IDEATION [None]
